FAERS Safety Report 5534010-8 (Version None)
Quarter: 2007Q4

REPORT INFORMATION
  Report Type: 
  Country: None (occurrence: None)
  Receive Date: 20071130
  Receipt Date: 20071121
  Transmission Date: 20080405
  Serious: No
  Sender: FDA-Public Use
  Company Number: 2007SP020983

PATIENT
  Age: 50 Year
  Sex: Female
  Weight: 90.7194 kg

DRUGS (2)
  1. PEG-INTRON [Suspect]
     Indication: HEPATITIS C
     Dosage: 120 MCG;
     Dates: start: 20070601
  2. REBETOL [Suspect]
     Indication: HEPATITIS C
     Dosage: PO, 1000 MG; QD; PO
     Route: 048
     Dates: start: 20070601

REACTIONS (8)
  - BLEPHARITIS [None]
  - BLISTER [None]
  - ERYTHEMA [None]
  - EYELID DISORDER [None]
  - IMPAIRED HEALING [None]
  - ORAL MUCOSAL BLISTERING [None]
  - PRURITUS [None]
  - WHITE BLOOD CELL COUNT DECREASED [None]
